FAERS Safety Report 4632073-5 (Version None)
Quarter: 2005Q2

REPORT INFORMATION
  Report Type: 
  Country: None (occurrence: None)
  Receive Date: 20050331
  Receipt Date: 20040303
  Transmission Date: 20051028
  Serious: Yes (Other)
  Sender: FDA-Public Use
  Company Number: 200411069BCC

PATIENT
  Age: 56 Year
  Sex: Female
  Weight: 71.2147 kg

DRUGS (4)
  1. ALEVE (CAPLET) [Suspect]
     Indication: HEADACHE
     Dosage: 440 MG, ONCE, ORAL
     Route: 048
     Dates: start: 20040124
  2. LOTENSIN [Concomitant]
  3. CITRUCEL [Concomitant]
  4. ASPIRIN [Concomitant]

REACTIONS (4)
  - ERYTHEMA [None]
  - HYPERSENSITIVITY [None]
  - OROPHARYNGEAL SWELLING [None]
  - PRURITUS GENERALISED [None]
